FAERS Safety Report 8296629-3 (Version None)
Quarter: 2012Q2

REPORT INFORMATION
  Report Type: 
  Country: None (occurrence: None)
  Receive Date: 20120418
  Receipt Date: 20120418
  Transmission Date: 20120825
  Serious: Yes (Other)
  Sender: FDA-Public Use
  Company Number: None

PATIENT
  Age: 76 Year
  Sex: Male
  Weight: 72.574 kg

DRUGS (1)
  1. METOPROLOL TARTRATE [Suspect]
     Indication: HEART RATE IRREGULAR
     Dosage: 1/2 TABLET
     Route: 048
     Dates: start: 20120220, end: 20120404

REACTIONS (5)
  - AMNESIA [None]
  - DEPRESSION [None]
  - THEFT [None]
  - MOOD ALTERED [None]
  - PARANOIA [None]
